FAERS Safety Report 10622382 (Version 1)
Quarter: 2014Q4

REPORT INFORMATION
  Report Type: Spontaneous
  Country: US (occurrence: None)
  Receive Date: 20141201
  Receipt Date: 20141201
  Transmission Date: 20150529
  Serious: Yes (Hospitalization)
  Sender: FDA-Public Use
  Company Number: None

PATIENT
  Age: 80 Year
  Sex: Male
  Weight: 133.9 kg

DRUGS (1)
  1. ENOXAPARIN [Suspect]
     Active Substance: ENOXAPARIN
     Indication: GASTROINTESTINAL HAEMORRHAGE
     Dosage: 150MG  BID  SQ
     Route: 058
     Dates: start: 20140510, end: 20140510

REACTIONS (3)
  - Gastric haemorrhage [None]
  - Melaena [None]
  - Inappropriate schedule of drug administration [None]

NARRATIVE: CASE EVENT DATE: 20140510
